FAERS Safety Report 9342734 (Version 3)
Quarter: 2014Q1

REPORT INFORMATION
  Report Type: Spontaneous
  Country: US (occurrence: None)
  Receive Date: 20130524
  Receipt Date: 20140116
  Transmission Date: 20141002
  Serious: Yes (Other)
  Sender: FDA-Public Use
  Company Number: AUR-APL-2013-04153

PATIENT
  Age: 55 Year
  Sex: Male

DRUGS (2)
  1. CYCLOBENZAPRINE [Suspect]
     Indication: PAIN
  2. OXYCODONE [Suspect]
     Indication: PAIN

REACTIONS (12)
  - Delirium [None]
  - Hyperkinesia [None]
  - Serotonin syndrome [None]
  - Psychotic disorder [None]
  - Myoclonus [None]
  - Dyskinesia [None]
  - Sepsis [None]
  - Endocrine disorder [None]
  - Somatoform disorder [None]
  - Drug interaction [None]
  - Neuropsychiatric syndrome [None]
  - Metabolic disorder [None]
